FAERS Safety Report 9303093 (Version 1)
Quarter: 2013Q2

REPORT INFORMATION
  Report Type: Spontaneous
  Country: TR (occurrence: TR)
  Receive Date: 20130522
  Receipt Date: 20130522
  Transmission Date: 20140414
  Serious: Yes (Other)
  Sender: FDA-Public Use
  Company Number: TR-B.I. PHARMACEUTICALS,INC./RIDGEFIELD-2013-BI-13424GD

PATIENT
  Age: 39 Year
  Sex: Male

DRUGS (1)
  1. MAPELOR [Suspect]
     Indication: CALCULUS URETERIC
     Dosage: 0.4 MG
     Route: 048

REACTIONS (1)
  - Tendon rupture [Unknown]
